FAERS Safety Report 19362313 (Version 1)
Quarter: 2021Q2

REPORT INFORMATION
  Report Type: Spontaneous
  Country: FR (occurrence: FR)
  Receive Date: 20210601
  Receipt Date: 20210601
  Transmission Date: 20210717
  Serious: Yes (Hospitalization)
  Sender: FDA-Public Use
  Company Number: FR-OTSUKA-2021_016678

PATIENT
  Age: 40 Year
  Sex: Male

DRUGS (2)
  1. ABILIFY MAINTENA [Suspect]
     Active Substance: ARIPIPRAZOLE
     Indication: AGITATION
     Dosage: INJECTION OF 400 MG ? 3RD INJECTION ON 12?MAY?2021
     Route: 065
  2. ABILIFY [Suspect]
     Active Substance: ARIPIPRAZOLE
     Indication: AGITATION
     Dosage: 30 MG FOR 4 MONTHS
     Route: 065
     Dates: start: 2021

REACTIONS (6)
  - Dry mouth [Unknown]
  - Dyskinesia [Unknown]
  - Sedation [Unknown]
  - Erectile dysfunction [Unknown]
  - Behaviour disorder [Unknown]
  - Product use in unapproved indication [Unknown]
